FAERS Safety Report 7645929-6 (Version None)
Quarter: 2011Q3

REPORT INFORMATION
  Report Type: 
  Country: None (occurrence: None)
  Receive Date: 20110729
  Receipt Date: 20110725
  Transmission Date: 20111222
  Serious: Yes (Hospitalization, Other)
  Sender: FDA-Public Use
  Company Number: US-MERCK-1103USA03424

PATIENT
  Age: 67 Year
  Sex: Female
  Weight: 79 kg

DRUGS (14)
  1. FOSAMAX [Suspect]
     Route: 048
     Dates: start: 20090523
  2. FOSAMAX [Suspect]
     Route: 048
     Dates: start: 20030107
  3. FOSAMAX [Suspect]
     Route: 048
     Dates: start: 20090523
  4. PREDNISONE [Concomitant]
     Indication: URTICARIA
     Route: 065
     Dates: start: 19920101
  5. ENBREL [Concomitant]
     Indication: ARTHRITIS
     Route: 065
     Dates: start: 19990101, end: 20090101
  6. [THERAPY UNSPECIFIED] [Concomitant]
     Indication: BLOOD CHOLESTEROL INCREASED
     Route: 065
  7. LEVOXYL [Concomitant]
     Indication: HYPOTHYROIDISM
     Route: 065
     Dates: start: 20010101
  8. FOSAMAX [Suspect]
     Indication: BONE DENSITY DECREASED
     Route: 048
     Dates: start: 20021003, end: 20090702
  9. PREDNISONE [Concomitant]
     Indication: INFLAMMATION
     Route: 065
     Dates: start: 19920101
  10. [THERAPY UNSPECIFIED] [Concomitant]
     Indication: HYPERTENSION
     Route: 065
  11. FOSAMAX [Suspect]
     Indication: OSTEOPOROSIS
     Route: 048
     Dates: start: 20021003, end: 20090702
  12. FOSAMAX [Suspect]
     Route: 048
     Dates: start: 20030107
  13. CELEBREX [Concomitant]
     Indication: ARTHRITIS
     Route: 065
     Dates: start: 19990101, end: 20090101
  14. ALENDRONATE SODIUM [Suspect]
     Indication: BONE DENSITY DECREASED
     Route: 048
     Dates: start: 20090111, end: 20090406

REACTIONS (50)
  - APHTHOUS STOMATITIS [None]
  - LEFT VENTRICULAR HYPERTROPHY [None]
  - INFECTIOUS PERITONITIS [None]
  - HYPERCHOLESTEROLAEMIA [None]
  - EAR PAIN [None]
  - DIVERTICULUM [None]
  - ARTERIOSCLEROSIS CORONARY ARTERY [None]
  - CHEST PAIN [None]
  - CATARACT [None]
  - HEPATIC ENZYME INCREASED [None]
  - PAROTID ABSCESS [None]
  - TRISMUS [None]
  - SINUSITIS [None]
  - SPINAL OSTEOARTHRITIS [None]
  - ARTHROPATHY [None]
  - EUSTACHIAN TUBE DYSFUNCTION [None]
  - DIZZINESS [None]
  - PAIN [None]
  - OSTEONECROSIS OF JAW [None]
  - ORAL DISCOMFORT [None]
  - DYSPHONIA [None]
  - COLONIC POLYP [None]
  - CARPAL TUNNEL SYNDROME [None]
  - PHARYNGEAL ABSCESS [None]
  - ARRHYTHMIA [None]
  - AURICULOTEMPORAL SYNDROME [None]
  - TONGUE DISCOLOURATION [None]
  - MACULAR DEGENERATION [None]
  - INTERVERTEBRAL DISC SPACE NARROWING [None]
  - INTERVERTEBRAL DISC PROTRUSION [None]
  - HAEMATOCHEZIA [None]
  - CONDUCTIVE DEAFNESS [None]
  - BUNDLE BRANCH BLOCK LEFT [None]
  - OVERDOSE [None]
  - SYSTEMIC LUPUS ERYTHEMATOSUS [None]
  - HEPATIC STEATOSIS [None]
  - MUSCLE INJURY [None]
  - RHINITIS [None]
  - NASAL SEPTUM DEVIATION [None]
  - IMPAIRED HEALING [None]
  - ADVERSE DRUG REACTION [None]
  - DECREASED IMMUNE RESPONSIVENESS [None]
  - EAR DISORDER [None]
  - UPPER RESPIRATORY TRACT INFECTION [None]
  - TEMPOROMANDIBULAR JOINT SYNDROME [None]
  - DYSPHAGIA [None]
  - PALLOR [None]
  - ORAL PAIN [None]
  - NAUSEA [None]
  - JOINT CREPITATION [None]
